FAERS Safety Report 13375745 (Version 2)
Quarter: 2024Q4

REPORT INFORMATION
  Report Type: Spontaneous
  Country: FR (occurrence: FR)
  Receive Date: 20170328
  Receipt Date: 20241213
  Transmission Date: 20250115
  Serious: Yes (Hospitalization, Other)
  Sender: AUROBINDO
  Company Number: FR-AUROBINDO-AUR-APL-2017-31204

PATIENT
  Age: 89 Year
  Sex: Male

DRUGS (12)
  1. LEVOFLOXACIN [Interacting]
     Active Substance: LEVOFLOXACIN
     Indication: Dermo-hypodermitis
     Dosage: 250 MILLIGRAM, DAILY [250 MG, DAILY]
     Route: 048
  2. LEVOFLOXACIN [Interacting]
     Active Substance: LEVOFLOXACIN
     Indication: Skin necrosis
  3. LEVOFLOXACIN [Interacting]
     Active Substance: LEVOFLOXACIN
     Indication: Staphylococcal infection
  4. PREDNISONE [Interacting]
     Active Substance: PREDNISONE
     Indication: Polyarthritis
     Dosage: 30 MILLIGRAM, DAILY [30 MG, DAILY]
     Route: 048
  5. ROSUVASTATIN [Interacting]
     Active Substance: ROSUVASTATIN
     Indication: Product used for unknown indication
     Dosage: UNK
     Route: 065
  6. COUMADIN [Suspect]
     Active Substance: WARFARIN SODIUM
     Indication: Product used for unknown indication
     Dosage: UNK
     Route: 065
  7. BISOPROLOL [Concomitant]
     Active Substance: BISOPROLOL
     Indication: Product used for unknown indication
     Dosage: UNK
     Route: 065
  8. ACETAMINOPHEN [Concomitant]
     Active Substance: ACETAMINOPHEN
     Indication: Product used for unknown indication
     Dosage: UNK
     Route: 065
  9. FUROSEMIDE [Concomitant]
     Active Substance: FUROSEMIDE
     Indication: Product used for unknown indication
     Dosage: UNK
     Route: 065
  10. OXACILLIN [Concomitant]
     Active Substance: OXACILLIN SODIUM
     Indication: Dermo-hypodermitis
     Dosage: 8 GRAM, ONCE A DAY
     Route: 042
  11. OXACILLIN [Concomitant]
     Active Substance: OXACILLIN SODIUM
     Indication: Staphylococcal infection
  12. OXACILLIN [Concomitant]
     Active Substance: OXACILLIN SODIUM
     Indication: Skin necrosis

REACTIONS (6)
  - Tendon disorder [Not Recovered/Not Resolved]
  - Joint microhaemorrhage [Unknown]
  - Ecchymosis [Recovering/Resolving]
  - Rotator cuff syndrome [Recovered/Resolved with Sequelae]
  - Haemarthrosis [Recovered/Resolved with Sequelae]
  - Haemorrhage [Recovered/Resolved]
